FAERS Safety Report 8570643-2 (Version None)
Quarter: 2012Q3

REPORT INFORMATION
  Report Type: 
  Country: None (occurrence: None)
  Receive Date: 20120804
  Receipt Date: 20120725
  Transmission Date: 20120928
  Serious: No
  Sender: FDA-Public Use
  Company Number: US-ASTRAZENECA-2012SE52704

PATIENT
  Age: 47 Year
  Sex: Male
  Weight: 85.3 kg

DRUGS (2)
  1. SEROQUEL [Suspect]
     Indication: ANXIETY
     Dosage: GENERIC
     Route: 048
  2. SEROQUEL [Suspect]
     Route: 048
     Dates: start: 20120724

REACTIONS (3)
  - PANIC ATTACK [None]
  - PALPITATIONS [None]
  - OFF LABEL USE [None]
